FAERS Safety Report 13291776 (Version 1)
Quarter: 2017Q1

REPORT INFORMATION
  Report Type: Spontaneous
  Country: DE (occurrence: DE)
  Receive Date: 20170303
  Receipt Date: 20170303
  Transmission Date: 20170428
  Serious: Yes (Other)
  Sender: FDA-Public Use
  Company Number: DE-TEVA-742826GER

PATIENT
  Age: 49 Year
  Sex: Female

DRUGS (1)
  1. FEM7 CONTI [Suspect]
     Active Substance: ESTRADIOL HEMIHYDRATE\LEVONORGESTREL
     Dosage: ONE PATCH CONTAINS 1.45MG ESTRADIOL AND 0.525MG LEVONORGESTREL; THERAPY START ABOUT 3 MONTHS AGO)

REACTIONS (4)
  - Vertigo [Not Recovered/Not Resolved]
  - Nausea [Not Recovered/Not Resolved]
  - Abdominal distension [Not Recovered/Not Resolved]
  - Postmenopausal haemorrhage [Not Recovered/Not Resolved]

NARRATIVE: CASE EVENT DATE: 2017
